FAERS Safety Report 18379776 (Version 3)
Quarter: 2021Q3

REPORT INFORMATION
  Report Type: Spontaneous
  Country: JP (occurrence: JP)
  Receive Date: 20201014
  Receipt Date: 20210802
  Transmission Date: 20211014
  Serious: Yes (Hospitalization)
  Sender: FDA-Public Use
  Company Number: JP-AMGEN-JPNSP2020163100

PATIENT

DRUGS (1)
  1. EVENITY [Suspect]
     Active Substance: ROMOSOZUMAB-AQQG
     Indication: PRODUCT USED FOR UNKNOWN INDICATION
     Dosage: 210 MILLIGRAM
     Route: 058

REACTIONS (6)
  - Unevaluable event [Unknown]
  - Injection site erythema [Unknown]
  - Amylase abnormal [Unknown]
  - Arthralgia [Unknown]
  - Blood calcium abnormal [Unknown]
  - Injection site pain [Unknown]
